FAERS Safety Report 9813150 (Version 1)
Quarter: 2014Q1

REPORT INFORMATION
  Report Type: Spontaneous
  Country: FR (occurrence: FR)
  Receive Date: 20140113
  Receipt Date: 20140113
  Transmission Date: 20141002
  Serious: Yes (Hospitalization)
  Sender: FDA-Public Use
  Company Number: FR-009507513-1401FRA001219

PATIENT
  Age: 60 Year
  Sex: Male

DRUGS (4)
  1. EMEND [Suspect]
     Indication: PREMEDICATION
     Dosage: 125 MG, QD
     Route: 048
     Dates: start: 20130924, end: 20130926
  2. CISPLATIN [Suspect]
     Indication: TONGUE NEOPLASM MALIGNANT STAGE UNSPECIFIED
     Dosage: 171 MG, UNKNOWN
     Route: 041
     Dates: start: 20130924
  3. METHYLPREDNISOLONE [Suspect]
     Indication: PREMEDICATION
     Dosage: 60 MG, QD
     Route: 042
     Dates: start: 20130924
  4. ZOPHREN (ONDANSETRON HYDROCHLORIDE) [Suspect]
     Indication: PREMEDICATION
     Dosage: 1 DF, QD
     Route: 042
     Dates: start: 20130924

REACTIONS (2)
  - Erythema [Recovered/Resolved]
  - Pruritus [Recovered/Resolved]
